FAERS Safety Report 8157375-X (Version None)
Quarter: 2012Q1

REPORT INFORMATION
  Report Type: 
  Country: None (occurrence: None)
  Receive Date: 20120103
  Receipt Date: 20110930
  Transmission Date: 20120608
  Serious: No
  Sender: FDA-Public Use
  Company Number: AE-2011-001945

PATIENT
  Age: 51 Year
  Sex: Female
  Weight: 49.8957 kg

DRUGS (3)
  1. INCIVEK [Suspect]
     Dosage: 2250 MG (750 MG,1 IN 8 HR) ,ORAL
     Route: 048
     Dates: start: 20110914
  2. PEGASYS [Concomitant]
  3. RIBAVIRIN [Concomitant]

REACTIONS (5)
  - BACK PAIN [None]
  - NAUSEA [None]
  - VOMITING [None]
  - ASTHENIA [None]
  - ABDOMINAL DISCOMFORT [None]
